FAERS Safety Report 9602305 (Version 1)
Quarter: 2013Q4

REPORT INFORMATION
  Report Type: Spontaneous
  Country: US (occurrence: US)
  Receive Date: 20131007
  Receipt Date: 20131007
  Transmission Date: 20140711
  Serious: No
  Sender: FDA-Public Use
  Company Number: US-GLAXOSMITHKLINE-A1027132A

PATIENT
  Sex: Male

DRUGS (7)
  1. BENLYSTA [Suspect]
     Indication: SYSTEMIC LUPUS ERYTHEMATOSUS
     Dosage: 1000MG MONTHLY
     Route: 042
     Dates: start: 20130408, end: 20130603
  2. PREDNISONE [Concomitant]
  3. COUMADIN [Concomitant]
  4. IMURAN [Concomitant]
  5. TRAMADOL [Concomitant]
  6. BENADRYL [Concomitant]
  7. TYLENOL [Concomitant]

REACTIONS (4)
  - Pain [Not Recovered/Not Resolved]
  - Injection site swelling [Unknown]
  - Swelling [Unknown]
  - Injection site discolouration [Unknown]
